FAERS Safety Report 7278294-7 (Version None)
Quarter: 2010Q4

REPORT INFORMATION
  Report Type: 
  Country: None (occurrence: None)
  Receive Date: 20101206
  Receipt Date: 20101028
  Transmission Date: 20110411
  Serious: Yes (Other)
  Sender: FDA-Public Use
  Company Number: 2010SP057473

PATIENT
  Age: 83 Year
  Sex: Female

DRUGS (3)
  1. SAPHRIS [Suspect]
     Indication: HALLUCINATION
     Dosage: 10 MG;QD;SL, 5 MG;QD; 5 MG; QOD
     Route: 060
     Dates: start: 20100401
  2. SAPHRIS [Suspect]
     Indication: HALLUCINATION
     Dosage: 10 MG;QD;SL, 5 MG;QD; 5 MG; QOD
     Route: 060
     Dates: start: 20100401
  3. SAPHRIS [Suspect]
     Indication: HALLUCINATION
     Dosage: 10 MG;QD;SL, 5 MG;QD; 5 MG; QOD
     Route: 060
     Dates: start: 20100501

REACTIONS (2)
  - LETHARGY [None]
  - PARKINSONISM [None]
